FAERS Safety Report 11112034 (Version 3)
Quarter: 2015Q2

REPORT INFORMATION
  Report Type: Spontaneous
  Country: FR (occurrence: FR)
  Receive Date: 20150514
  Receipt Date: 20150525
  Transmission Date: 20150821
  Serious: Yes (Death, Hospitalization)
  Sender: FDA-Public Use
  Company Number: FR-JNJFOC-20150423701

PATIENT
  Age: 63 Year
  Sex: Male
  Weight: 71.5 kg

DRUGS (24)
  1. LOXAPAC [Suspect]
     Active Substance: LOXAPINE SUCCINATE
     Indication: PRODUCT USED FOR UNKNOWN INDICATION
     Route: 048
     Dates: start: 20150112, end: 20150123
  2. PLAVIX [Concomitant]
     Active Substance: CLOPIDOGREL BISULFATE
     Route: 048
  3. HALDOL [Suspect]
     Active Substance: HALOPERIDOL
     Indication: PRODUCT USED FOR UNKNOWN INDICATION
     Dosage: 25 DROPS
     Route: 048
     Dates: start: 20150219, end: 20150221
  4. LOXEN [Concomitant]
     Active Substance: NICARDIPINE HYDROCHLORIDE
     Route: 048
  5. INSULIN [Concomitant]
     Active Substance: INSULIN NOS
     Route: 058
  6. ALTEISDUO [Concomitant]
     Active Substance: HYDROCHLOROTHIAZIDE\OLMESARTAN MEDOXOMIL
     Route: 065
  7. SIMVASTATIN. [Concomitant]
     Active Substance: SIMVASTATIN
     Route: 065
  8. DIAMICRON [Concomitant]
     Active Substance: GLICLAZIDE
     Route: 065
  9. ANAFRANIL [Concomitant]
     Active Substance: CLOMIPRAMINE HYDROCHLORIDE
     Indication: PRODUCT USED FOR UNKNOWN INDICATION
     Route: 065
  10. PARKINANE [Concomitant]
     Active Substance: TRIHEXYPHENIDYL HYDROCHLORIDE
     Route: 048
  11. HALDOL [Suspect]
     Active Substance: HALOPERIDOL
     Indication: PRODUCT USED FOR UNKNOWN INDICATION
     Route: 048
     Dates: end: 20150123
  12. THERALENE [Suspect]
     Active Substance: TRIMEPRAZINE
     Indication: PRODUCT USED FOR UNKNOWN INDICATION
     Route: 048
     Dates: start: 20150221
  13. ACEBUTOLOL [Concomitant]
     Active Substance: ACEBUTOLOL
     Route: 048
  14. HALDOL [Suspect]
     Active Substance: HALOPERIDOL
     Indication: PRODUCT USED FOR UNKNOWN INDICATION
     Route: 048
     Dates: start: 20150302, end: 20150304
  15. NOZINAN [Suspect]
     Active Substance: LEVOMEPROMAZINE
     Indication: PRODUCT USED FOR UNKNOWN INDICATION
     Route: 048
     Dates: end: 20150123
  16. INEXIUM [Concomitant]
     Active Substance: ESOMEPRAZOLE
     Route: 065
  17. PERINDOPRIL [Concomitant]
     Active Substance: PERINDOPRIL
     Route: 048
  18. NOCTAMIDE [Concomitant]
     Active Substance: LORMETAZEPAM
     Route: 048
  19. VELMETIA [Concomitant]
     Active Substance: METFORMIN\SITAGLIPTIN
     Route: 065
  20. THERALENE [Suspect]
     Active Substance: TRIMEPRAZINE
     Indication: PRODUCT USED FOR UNKNOWN INDICATION
     Route: 048
     Dates: start: 20140302, end: 20140304
  21. THERALENE [Suspect]
     Active Substance: TRIMEPRAZINE
     Indication: PRODUCT USED FOR UNKNOWN INDICATION
     Route: 048
     Dates: start: 20150302, end: 20150304
  22. TEGRETOL [Concomitant]
     Active Substance: CARBAMAZEPINE
     Route: 048
  23. ALDACTAZINE [Concomitant]
     Active Substance: ALTHIAZIDE\SPIRONOLACTONE
     Route: 065
  24. ATENOLOL. [Concomitant]
     Active Substance: ATENOLOL
     Route: 065

REACTIONS (7)
  - Contusion [Unknown]
  - Head injury [Unknown]
  - Decubitus ulcer [Unknown]
  - Neuroleptic malignant syndrome [Recovered/Resolved]
  - Neuroleptic malignant syndrome [Fatal]
  - Acute kidney injury [Unknown]
  - Diabetes mellitus inadequate control [Unknown]

NARRATIVE: CASE EVENT DATE: 20150115
